FAERS Safety Report 4556800-0 (Version None)
Quarter: 2005Q1

REPORT INFORMATION
  Report Type: 
  Country: None (occurrence: None)
  Receive Date: 20050103
  Receipt Date: 20040817
  Transmission Date: 20050727
  Serious: No
  Sender: FDA-Public Use
  Company Number: 2004UW15218

PATIENT
  Age: 63 Year
  Sex: Male
  Weight: 71.6683 kg

DRUGS (5)
  1. CRESTOR [Suspect]
     Indication: BLOOD CHOLESTEROL INCREASED
     Dosage: 10 MG PO
     Route: 048
  2. METFORMIN HCL [Concomitant]
  3. LISINOPRIL [Concomitant]
  4. ECOTRIN [Concomitant]
  5. NIASPAN [Concomitant]

REACTIONS (3)
  - ASTHENIA [None]
  - DIARRHOEA [None]
  - MALAISE [None]
